FAERS Safety Report 4932643-0 (Version None)
Quarter: 2006Q1

REPORT INFORMATION
  Report Type: 
  Country: None (occurrence: None)
  Receive Date: 20060303
  Receipt Date: 20060224
  Transmission Date: 20060701
  Serious: Yes (Death)
  Sender: FDA-Public Use
  Company Number: IS-NOVOPROD-251170

PATIENT
  Age: 71 Year
  Sex: Female

DRUGS (1)
  1. NOVOSEVEN [Suspect]
     Indication: HAEMORRHAGE
     Dosage: UNK, UNK
     Dates: start: 20051215, end: 20051215

REACTIONS (1)
  - ARTERIAL THROMBOSIS [None]
